FAERS Safety Report 9088090 (Version 1)
Quarter: 2013Q1

REPORT INFORMATION
  Report Type: Spontaneous
  Country: CO (occurrence: CO)
  Receive Date: 20130201
  Receipt Date: 20130201
  Transmission Date: 20140127
  Serious: Yes (Other)
  Sender: FDA-Public Use
  Company Number: CO-PFIZER INC-2013038848

PATIENT
  Age: 60 Year
  Sex: Male

DRUGS (1)
  1. DETRUSITOL SR [Suspect]
     Dosage: UNK
     Dates: start: 201210

REACTIONS (1)
  - Amnesia [Unknown]
